FAERS Safety Report 9349287 (Version 2)
Quarter: 2013Q3

REPORT INFORMATION
  Report Type: Spontaneous
  Country: US (occurrence: US)
  Receive Date: 20130614
  Receipt Date: 20130821
  Transmission Date: 20140515
  Serious: Yes (Death)
  Sender: FDA-Public Use
  Company Number: US-ABBOTT-13P-163-1103891-00

PATIENT
  Age: 46 Year
  Sex: Male
  Weight: 90.8 kg

DRUGS (1)
  1. HUMIRA [Suspect]
     Indication: CROHN^S DISEASE
     Dosage: PATIENT ONLY RECEIVED THE LOADING DOSE
     Dates: start: 20130319, end: 20130319

REACTIONS (1)
  - B-cell lymphoma [Fatal]
